FAERS Safety Report 13791652 (Version 1)
Quarter: 2017Q3

REPORT INFORMATION
  Report Type: Spontaneous
  Country: US (occurrence: US)
  Receive Date: 20170725
  Receipt Date: 20170725
  Transmission Date: 20171127
  Serious: No
  Sender: FDA-Public Use
  Company Number: None

PATIENT
  Age: 57 Year
  Sex: Male

DRUGS (1)
  1. TEMOZOLOMIDE CAP 140MG [Suspect]
     Active Substance: TEMOZOLOMIDE
     Dosage: 7/20/2017 STILL ON 7/25/2017 1 CAP QD ORAL
     Route: 048
     Dates: start: 20170720

REACTIONS (2)
  - Fatigue [None]
  - Headache [None]

NARRATIVE: CASE EVENT DATE: 20170721
